FAERS Safety Report 5268628-7 (Version None)
Quarter: 2007Q1

REPORT INFORMATION
  Report Type: 
  Country: None (occurrence: None)
  Receive Date: 20070315
  Receipt Date: 20070315
  Transmission Date: 20070707
  Serious: Yes (Other)
  Sender: FDA-Public Use
  Company Number: None

PATIENT
  Sex: Female

DRUGS (1)
  1. BENZOCAINE SPRAY [Suspect]
     Dosage: AS NEEDED   TOP
     Route: 061
     Dates: start: 20060901, end: 20060901

REACTIONS (3)
  - METHAEMOGLOBINAEMIA [None]
  - NAUSEA [None]
  - OXYGEN SATURATION DECREASED [None]
